FAERS Safety Report 8611736 (Version 3)
Quarter: 2015Q2

REPORT INFORMATION
  Report Type: Spontaneous
  Country: US (occurrence: US)
  Receive Date: 20120613
  Receipt Date: 20150616
  Transmission Date: 20150821
  Serious: Yes (Death, Hospitalization)
  Sender: FDA-Public Use
  Company Number: US-SANOFI-AVENTIS-2012SA041835

PATIENT
  Age: 65 Year
  Sex: Female
  Weight: 72.57 kg

DRUGS (36)
  1. ZOCOR [Concomitant]
     Active Substance: SIMVASTATIN
  2. FISH OIL [Concomitant]
     Active Substance: FISH OIL
  3. TOPROL XL [Concomitant]
     Active Substance: METOPROLOL SUCCINATE
  4. PREVACID [Concomitant]
     Active Substance: LANSOPRAZOLE
     Route: 048
  5. TRAMADOL [Concomitant]
     Active Substance: TRAMADOL
  6. ASPIRIN. [Concomitant]
     Active Substance: ASPIRIN
  7. POLYETHYLENE GLYCOL [Concomitant]
     Active Substance: POLYETHYLENE GLYCOLS
  8. GLIPIZIDE. [Concomitant]
     Active Substance: GLIPIZIDE
  9. ELAVIL [Concomitant]
     Active Substance: AMITRIPTYLINE HYDROCHLORIDE
  10. ALTACE [Concomitant]
     Active Substance: RAMIPRIL
  11. SYNTHROID [Concomitant]
     Active Substance: LEVOTHYROXINE SODIUM
  12. ATENOLOL. [Concomitant]
     Active Substance: ATENOLOL
     Route: 048
  13. BACTRIM [Concomitant]
     Active Substance: SULFAMETHOXAZOLE\TRIMETHOPRIM
     Indication: URINARY TRACT INFECTION
  14. INSULIN [Concomitant]
     Active Substance: INSULIN NOS
  15. DARVOCET [Concomitant]
     Active Substance: ACETAMINOPHEN\PROPOXYPHENE HYDROCHLORIDE
  16. RENAGEL [Concomitant]
     Active Substance: SEVELAMER HYDROCHLORIDE
     Route: 048
  17. GLUCOVANCE [Concomitant]
     Active Substance: GLYBURIDE\METFORMIN HYDROCHLORIDE
  18. VITAMIN C [Concomitant]
     Active Substance: ASCORBIC ACID
  19. LISINOPRIL. [Concomitant]
     Active Substance: LISINOPRIL
     Route: 048
  20. LEVAQUIN [Concomitant]
     Active Substance: LEVOFLOXACIN
  21. ARIMIDEX [Concomitant]
     Active Substance: ANASTROZOLE
  22. AMBIEN CR [Concomitant]
     Active Substance: ZOLPIDEM TARTRATE
  23. MINITRAN [Concomitant]
     Active Substance: NITROGLYCERIN
     Dosage: PATCH
  24. HALDOL [Concomitant]
     Active Substance: HALOPERIDOL
  25. PLAVIX [Suspect]
     Active Substance: CLOPIDOGREL BISULFATE
     Indication: PRODUCT USED FOR UNKNOWN INDICATION
     Route: 065
     Dates: start: 20011101, end: 20060330
  26. DEMADEX [Concomitant]
     Active Substance: TORSEMIDE
  27. SIMVASTATIN. [Concomitant]
     Active Substance: SIMVASTATIN
     Route: 048
  28. RISPERDAL [Concomitant]
     Active Substance: RISPERIDONE
  29. RESTORIL [Concomitant]
     Active Substance: TEMAZEPAM
  30. NITRO-DUR [Concomitant]
     Active Substance: NITROGLYCERIN
  31. AMOXICILLIN. [Concomitant]
     Active Substance: AMOXICILLIN
  32. ATIVAN [Concomitant]
     Active Substance: LORAZEPAM
     Route: 048
  33. CENTRUM SILVER [Concomitant]
     Active Substance: VITAMINS
     Route: 048
  34. PROCARDIA XL [Concomitant]
     Active Substance: NIFEDIPINE
  35. ZESTRIL [Concomitant]
     Active Substance: LISINOPRIL
  36. CIPRO [Concomitant]
     Active Substance: CIPROFLOXACIN HYDROCHLORIDE

REACTIONS (2)
  - Gastrointestinal haemorrhage [Fatal]
  - Death [Fatal]

NARRATIVE: CASE EVENT DATE: 20060330
